FAERS Safety Report 9699816 (Version 2)
Quarter: 2013Q4

REPORT INFORMATION
  Report Type: Spontaneous
  Country: CN (occurrence: CN)
  Receive Date: 20131120
  Receipt Date: 20131125
  Transmission Date: 20140711
  Serious: Yes (Death, Hospitalization, Other)
  Sender: FDA-Public Use
  Company Number: CN-009507513-1311CHN006271

PATIENT
  Age: 49 Year
  Sex: Female
  Weight: 34 kg

DRUGS (9)
  1. TIENAM [Suspect]
     Indication: PYREXIA
     Dosage: 3G DAILY, TID
     Route: 041
     Dates: start: 20130626
  2. ALBUMIN HUMAN [Concomitant]
     Indication: ADJUVANT THERAPY
  3. BLOOD CELLS, RED [Concomitant]
     Indication: ADJUVANT THERAPY
  4. BLOOD, PLASMA [Concomitant]
     Indication: ADJUVANT THERAPY
  5. AMINO ACIDS (UNSPECIFIED) [Concomitant]
  6. VITAMINS (UNSPECIFIED) [Concomitant]
  7. MEROPENEM [Concomitant]
     Dosage: UNK
     Dates: start: 201303
  8. CELECOXIB [Concomitant]
  9. LEVOCARNITINE [Concomitant]

REACTIONS (3)
  - Multi-organ failure [Fatal]
  - Septic shock [Fatal]
  - Epilepsy [Not Recovered/Not Resolved]
